FAERS Safety Report 16876522 (Version 1)
Quarter: 2019Q4

REPORT INFORMATION
  Report Type: Report from Study
  Country: IT (occurrence: IT)
  Receive Date: 20191002
  Receipt Date: 20191002
  Transmission Date: 20200122
  Serious: Yes (Hospitalization)
  Sender: FDA-Public Use
  Company Number: IT-ACCORD-156230

PATIENT
  Age: 62 Year
  Sex: Female
  Weight: 50 kg

DRUGS (6)
  1. EUTIROX [Concomitant]
     Active Substance: LEVOTHYROXINE SODIUM
     Dosage: STRENGTH: 75 MG
  2. FLUOROURACIL TEVA [Suspect]
     Active Substance: FLUOROURACIL
     Indication: PANCREATIC CARCINOMA METASTATIC
     Dosage: STRENGTH: 5 G/100 ML
     Route: 041
     Dates: start: 20190522, end: 20190805
  3. OXALIPLATIN ACCORD [Suspect]
     Active Substance: OXALIPLATIN
     Indication: PANCREATIC CARCINOMA METASTATIC
     Route: 042
     Dates: start: 20190522, end: 20190805
  4. IRINOTECAN KABI [Suspect]
     Active Substance: IRINOTECAN
     Indication: PANCREATIC CARCINOMA METASTATIC
     Dosage: STRENGTH:  20 MG/ML
     Route: 042
     Dates: start: 20190522, end: 20190805
  5. FLUOROURACIL TEVA [Suspect]
     Active Substance: FLUOROURACIL
     Indication: PANCREATIC CARCINOMA METASTATIC
     Dosage: STRENGTH: 5 G/100 ML
     Route: 040
     Dates: start: 20190522, end: 20190805
  6. CARVEDILOL TECHNIGEN [Concomitant]
     Dosage: STRENGTH: 25 MG

REACTIONS (2)
  - Jaundice [Not Recovered/Not Resolved]
  - Off label use [Unknown]

NARRATIVE: CASE EVENT DATE: 20190918
